FAERS Safety Report 6127790-4 (Version None)
Quarter: 2009Q1

REPORT INFORMATION
  Report Type: 
  Country: None (occurrence: None)
  Receive Date: 20090320
  Receipt Date: 20090320
  Transmission Date: 20090719
  Serious: Yes (Other)
  Sender: FDA-Public Use
  Company Number: None

PATIENT
  Age: 49 Year
  Sex: Female
  Weight: 86.1834 kg

DRUGS (2)
  1. ASPIRIN [Suspect]
     Indication: BLOOD CHOLESTEROL INCREASED
     Dosage: 81 MG QD PO RECENTLY
     Route: 048
  2. ASPIRIN [Suspect]
     Indication: INFLAMMATION
     Dosage: 81 MG QD PO RECENTLY
     Route: 048

REACTIONS (1)
  - MIGRAINE [None]
